FAERS Safety Report 8176515-X (Version None)
Quarter: 2012Q1

REPORT INFORMATION
  Report Type: 
  Country: None (occurrence: None)
  Receive Date: 20120118
  Receipt Date: 20111128
  Transmission Date: 20120608
  Serious: Yes (Other)
  Sender: FDA-Public Use
  Company Number: 2011SCPR003452

PATIENT
  Age: 71 Year
  Sex: Male

DRUGS (2)
  1. CIPROFLOXACIN [Suspect]
     Indication: BRONCHITIS
  2. DOXYCYCLINE MONOHYDRATE [Suspect]
     Indication: BRONCHITIS
     Dosage: ORAL
     Route: 048
     Dates: end: 20100101

REACTIONS (3)
  - PATHOGEN RESISTANCE [None]
  - DRUG INEFFECTIVE [None]
  - PRODUCT QUALITY ISSUE [None]
